FAERS Safety Report 5939100-3 (Version None)
Quarter: 2008Q4

REPORT INFORMATION
  Report Type: 
  Country: None (occurrence: None)
  Receive Date: 20081103
  Receipt Date: 20081027
  Transmission Date: 20090506
  Serious: Yes (Hospitalization)
  Sender: FDA-Public Use
  Company Number: B0539036A

PATIENT
  Age: 72 Year
  Sex: Female

DRUGS (8)
  1. VALTREX [Suspect]
     Indication: HERPES ZOSTER
     Dosage: 1000MG THREE TIMES PER DAY
     Route: 048
     Dates: start: 20080830, end: 20080902
  2. LIPITOR [Concomitant]
     Dosage: 10MG PER DAY
     Route: 048
  3. VESICARE [Concomitant]
     Dosage: 5MG PER DAY
     Route: 048
  4. BUFFERIN [Concomitant]
     Dosage: 81MG PER DAY
     Route: 048
  5. HERBESSER R [Concomitant]
     Dosage: 100MG PER DAY
     Route: 048
  6. GASTER D [Concomitant]
     Dosage: 40MG PER DAY
     Route: 048
  7. GASTER D [Concomitant]
     Dosage: 20MG PER DAY
     Route: 048
  8. CYANOCOBALAMIN [Concomitant]
     Dosage: 150MCG PER DAY
     Route: 048

REACTIONS (4)
  - DIZZINESS [None]
  - DYSSTASIA [None]
  - NAUSEA [None]
  - RENAL FAILURE ACUTE [None]
